FAERS Safety Report 10570542 (Version 2)
Quarter: 2014Q4

REPORT INFORMATION
  Report Type: Spontaneous
  Country: US (occurrence: US)
  Receive Date: 20141107
  Receipt Date: 20141107
  Transmission Date: 20150529
  Serious: No
  Sender: FDA-Public Use
  Company Number: US-TEVA-456158USA

PATIENT
  Age: 63 Year
  Sex: Female

DRUGS (1)
  1. OXALIPLATIN INJECTION 50MG/10 ML AND 100MG/20ML [Suspect]
     Active Substance: OXALIPLATIN
     Dosage: 50 MG AND 100 MG

REACTIONS (5)
  - Muscle spasms [Unknown]
  - Panic disorder [Recovered/Resolved]
  - Throat tightness [Recovered/Resolved]
  - Dyspnoea [Recovered/Resolved]
  - Neuropathy peripheral [Not Recovered/Not Resolved]

NARRATIVE: CASE EVENT DATE: 20131209
